FAERS Safety Report 9236842 (Version 1)
Quarter: 2013Q2

REPORT INFORMATION
  Report Type: Spontaneous
  Country: US (occurrence: US)
  Receive Date: 20130417
  Receipt Date: 20130417
  Transmission Date: 20140414
  Serious: No
  Sender: FDA-Public Use
  Company Number: US201011003211

PATIENT
  Sex: Female
  Weight: 70.52 kg

DRUGS (10)
  1. BYETTA PEN DISPOSABLE [Suspect]
     Indication: TYPE 2 DIABETES MELLITUS
     Route: 058
  2. BYETTA PEN DISPOSABLE [Suspect]
     Indication: TYPE 2 DIABETES MELLITUS
     Route: 058
  3. BYETTA PEN DISPOSABLE [Suspect]
     Indication: TYPE 2 DIABETES MELLITUS
     Route: 058
  4. BYETTA PEN DISPOSABLE [Suspect]
     Indication: TYPE 2 DIABETES MELLITUS
     Route: 058
  5. EXENATIDE UNK STRENGTH PEN, DISPOSABLE DEVICE [Concomitant]
  6. EXENATIDE 5MCG PEN, DISPOSABLE DEVICE [Concomitant]
  7. EXENATIDE 5MCG PEN, DISPOSABLE DEVICE [Concomitant]
  8. METFORMIN [Concomitant]
  9. AVALOX [Concomitant]
  10. EPSOM SALT [Concomitant]

REACTIONS (17)
  - Feeling cold [Unknown]
  - Hunger [Unknown]
  - Exostosis [Not Recovered/Not Resolved]
  - Tendonitis [Not Recovered/Not Resolved]
  - Tendon calcification [Not Recovered/Not Resolved]
  - Inflammation [Not Recovered/Not Resolved]
  - Swelling [Recovering/Resolving]
  - Bursitis [Not Recovered/Not Resolved]
  - Blood glucose increased [Unknown]
  - Weight increased [Recovered/Resolved]
  - Blood glucose decreased [Unknown]
  - Weight decreased [Unknown]
  - Inappropriate schedule of drug administration [Not Recovered/Not Resolved]
  - Gastrooesophageal reflux disease [Recovered/Resolved]
  - Malaise [Recovered/Resolved]
  - Diarrhoea [Recovered/Resolved]
  - Decreased appetite [Unknown]
